FAERS Safety Report 16811383 (Version 2)
Quarter: 2020Q2

REPORT INFORMATION
  Report Type: Report from Study
  Country: US (occurrence: US)
  Receive Date: 20190916
  Receipt Date: 20200608
  Transmission Date: 20200713
  Serious: Yes (Hospitalization)
  Sender: FDA-Public Use
  Company Number: US-ACTELION-A-NJ2019-195474

PATIENT
  Age: 57 Year
  Sex: Male
  Weight: 75.28 kg

DRUGS (1)
  1. OPSUMIT [Suspect]
     Active Substance: MACITENTAN
     Indication: PULMONARY HYPERTENSION
     Dosage: 10 MG, QD
     Route: 048
     Dates: start: 20190615

REACTIONS (2)
  - Liver transplant [Unknown]
  - Carbon dioxide decreased [Recovered/Resolved]

NARRATIVE: CASE EVENT DATE: 201908
